FAERS Safety Report 21137206 (Version 2)
Quarter: 2023Q1

REPORT INFORMATION
  Report Type: Spontaneous
  Country: DE (occurrence: DE)
  Receive Date: 20220727
  Receipt Date: 20230215
  Transmission Date: 20230418
  Serious: Yes (Death, Life-Threatening, Hospitalization, Other)
  Sender: FDA-Public Use
  Company Number: None

PATIENT
  Age: 7 Year
  Sex: Male

DRUGS (8)
  1. ACYCLOVIR [Suspect]
     Active Substance: ACYCLOVIR
     Indication: Infection prophylaxis
     Dosage: UNKNOWN
     Route: 065
  2. BLINATUMOMAB [Suspect]
     Active Substance: BLINATUMOMAB
     Indication: Acute lymphocytic leukaemia
     Dosage: UNKNOWN
     Route: 065
  3. CEFTRIAXONE [Suspect]
     Active Substance: CEFTRIAXONE
     Indication: Infection prophylaxis
     Dosage: UNKNOWN
     Route: 065
  4. GENTAMICIN [Suspect]
     Active Substance: GENTAMICIN
     Indication: Infection prophylaxis
     Dosage: UNKNOWN
     Route: 065
  5. MEROPENEM [Suspect]
     Active Substance: MEROPENEM
     Indication: Infection prophylaxis
     Dosage: UNKNOWN
     Route: 065
  6. MORPHINE SULFATE [Suspect]
     Active Substance: MORPHINE SULFATE
     Indication: Flank pain
     Dosage: UNK (MAX. 15 MCG/KG PER HOUR)
     Route: 042
  7. TEICOPLANIN [Suspect]
     Active Substance: TEICOPLANIN
     Indication: Infection prophylaxis
     Dosage: UNKNOWN
     Route: 065
  8. CASPOFUNGIN [Suspect]
     Active Substance: CASPOFUNGIN
     Indication: Infection prophylaxis
     Dosage: 50 MG, DAILY
     Route: 065

REACTIONS (24)
  - Bone marrow failure [Unknown]
  - Pain [Unknown]
  - Cardiac ventricular thrombosis [Unknown]
  - Brain herniation [Fatal]
  - Myocardial injury [Unknown]
  - Embolism [Unknown]
  - Liver injury [Unknown]
  - C-reactive protein increased [Unknown]
  - Somnolence [Unknown]
  - Gastrointestinal injury [Unknown]
  - Overdose [Unknown]
  - Intracranial pressure increased [Unknown]
  - Renal injury [Unknown]
  - Systemic mycosis [Fatal]
  - Full blood count decreased [Unknown]
  - Pulmonary embolism [Unknown]
  - Cardiac failure [Unknown]
  - Disseminated mucormycosis [Fatal]
  - Cerebrovascular disorder [Unknown]
  - Endocarditis [Unknown]
  - Acute respiratory failure [Unknown]
  - Cerebral haemorrhage [Unknown]
  - Condition aggravated [Unknown]
  - Muscle injury [Unknown]
